FAERS Safety Report 13053955 (Version 2)
Quarter: 2017Q1

REPORT INFORMATION
  Report Type: Report from Study
  Country: BJ (occurrence: BJ)
  Receive Date: 20161222
  Receipt Date: 20170116
  Transmission Date: 20170428
  Serious: Yes (Death, Hospitalization)
  Sender: FDA-Public Use
  Company Number: PHHY2016BJ175150

PATIENT
  Age: 37 Year
  Sex: Male
  Weight: 84 kg

DRUGS (1)
  1. GLIVEC [Suspect]
     Active Substance: IMATINIB MESYLATE
     Indication: CHRONIC MYELOID LEUKAEMIA
     Dosage: 400 MG, UNK
     Route: 065
     Dates: start: 20161119

REACTIONS (3)
  - Meningitis [Fatal]
  - Pancytopenia [Fatal]
  - Meningorrhagia [Fatal]

NARRATIVE: CASE EVENT DATE: 20161119
